FAERS Safety Report 6964883-3 (Version None)
Quarter: 2010Q3

REPORT INFORMATION
  Report Type: 
  Country: None (occurrence: None)
  Receive Date: 20100903
  Receipt Date: 20100824
  Transmission Date: 20110219
  Serious: Yes (Other)
  Sender: FDA-Public Use
  Company Number: US-ELI_LILLY_AND_COMPANY-US201008008598

PATIENT
  Sex: Female

DRUGS (4)
  1. HUMALOG [Suspect]
     Indication: TYPE 2 DIABETES MELLITUS
     Dosage: 7 U, 3/D
  2. HUMALOG [Suspect]
     Dosage: 7 U, 3/D
  3. LANTUS [Concomitant]
     Dosage: 30 U, UNK
  4. LANTUS [Concomitant]
     Dosage: 7 U, UNK

REACTIONS (5)
  - BLOOD GLUCOSE INCREASED [None]
  - EYE DISORDER [None]
  - VISUAL IMPAIRMENT [None]
  - VITREOUS FLOATERS [None]
  - WRONG DRUG ADMINISTERED [None]
